FAERS Safety Report 7421167-7 (Version None)
Quarter: 2011Q2

REPORT INFORMATION
  Report Type: 
  Country: None (occurrence: None)
  Receive Date: 20110418
  Receipt Date: 20110415
  Transmission Date: 20111010
  Serious: Yes (Other)
  Sender: FDA-Public Use
  Company Number: US-PFIZER INC-2011083512

PATIENT
  Sex: Female

DRUGS (3)
  1. LYRICA [Suspect]
     Dosage: 150 MG, DAILY
     Route: 048
  2. LYRICA [Suspect]
     Dosage: 100 MG, DAILY
  3. LYRICA [Suspect]
     Dosage: 50 MG, DAILY

REACTIONS (1)
  - RENAL IMPAIRMENT [None]
